FAERS Safety Report 8990351 (Version 1)
Quarter: 2012Q4

REPORT INFORMATION
  Report Type: 
  Country: HR (occurrence: HR)
  Receive Date: 20121228
  Receipt Date: 20121228
  Transmission Date: 20130627
  Serious: Yes (Other)
  Sender: FDA-Public Use
  Company Number: HR-TEVA-377015ISR

PATIENT
  Age: 84 Year
  Sex: Female
  Weight: 63 kg

DRUGS (9)
  1. KORDOBIS [Suspect]
     Indication: HYPERTENSION
     Dosage: 2.5 Milligram Daily;
     Route: 048
     Dates: start: 20120524, end: 20120525
  2. REQUIP [Interacting]
     Indication: PARKINSON^S DISEASE
     Dosage: 4 Milligram Daily;
     Route: 048
  3. MADOPAR [Interacting]
     Indication: PARKINSON^S DISEASE
     Dosage: 1 Dosage forms Daily; Dosage forms is 100 mg Levodopa + 25 mg Benserazide
     Route: 048
  4. AKINETON [Interacting]
     Indication: PARKINSON^S DISEASE
     Dosage: 2 Milligram Daily;
     Route: 048
  5. ZALDIAR [Interacting]
     Indication: PAIN
     Dosage: 1 Dosage forms Daily; Dosage forms is 325 mg paracetamol + 37.5 mg tramadol
     Route: 048
  6. CERSON (NITRAZEPAM) [Suspect]
     Dosage: 5 Milligram Daily;
     Route: 048
  7. FURSEMID [Concomitant]
     Indication: CARDIAC FAILURE
     Route: 048
     Dates: start: 20120524
  8. NITROLINGUAL [Concomitant]
     Route: 060
  9. VENTOLIN [Concomitant]
     Route: 055

REACTIONS (3)
  - Insomnia [Recovered/Resolved]
  - Hallucination, auditory [Recovered/Resolved]
  - Drug interaction [Recovered/Resolved]
